FAERS Safety Report 9130867 (Version 1)
Quarter: 2013Q1

REPORT INFORMATION
  Report Type: Report from Study
  Country: DE (occurrence: DE)
  Receive Date: 20130301
  Receipt Date: 20130301
  Transmission Date: 20140127
  Serious: Yes (Other)
  Sender: FDA-Public Use
  Company Number: DE-BAYER-201021831GPV

PATIENT
  Age: 56 Year
  Sex: Female
  Weight: 58.2 kg

DRUGS (14)
  1. REGORAFENIB [Suspect]
     Indication: COLORECTAL CANCER
     Dosage: CYCLE 1 DAY 1
     Route: 048
     Dates: start: 20100410, end: 20100416
  2. REGORAFENIB [Suspect]
     Indication: COLORECTAL CANCER
     Dosage: CYCLE 2
     Route: 048
     Dates: start: 20100424, end: 20100430
  3. CALCIUMFOLINAT-GRY [Suspect]
     Indication: COLORECTAL CANCER
     Dosage: CYCLE 1 DAY 1
     Route: 042
     Dates: start: 20100407, end: 20100407
  4. CALCIUMFOLINAT-GRY [Suspect]
     Indication: COLORECTAL CANCER
     Dosage: CYCLE 1 DAY 15
     Route: 042
     Dates: start: 20100421, end: 20100421
  5. CALCIUMFOLINAT-GRY [Suspect]
     Indication: COLORECTAL CANCER
     Dosage: CYCLE 2
     Route: 042
     Dates: start: 20100505, end: 20100505
  6. ELOXATIN [Suspect]
     Indication: COLORECTAL CANCER
     Dosage: CYCLE 1 DAY 1
     Route: 042
     Dates: start: 20100407, end: 20100407
  7. ELOXATIN [Suspect]
     Indication: COLORECTAL CANCER
     Dosage: CYCLE 1 DAY 15
     Route: 042
     Dates: start: 20100421, end: 20100421
  8. ELOXATIN [Suspect]
     Indication: COLORECTAL CANCER
     Dosage: CYCLE 2
     Route: 042
     Dates: start: 20100505, end: 20100505
  9. 5-FU ^MEDAC^ [Suspect]
     Indication: COLORECTAL CANCER
     Dosage: CYCLE 1 DAY 1 - AS USED DOSE: 3720+620 MG
     Route: 042
     Dates: start: 20100407, end: 20100407
  10. 5-FU [Suspect]
     Indication: COLORECTAL CANCER
     Dosage: CYCLE 1 DAY 1
     Route: 042
     Dates: start: 20100408, end: 20100409
  11. 5-FU ^MEDAC^ [Suspect]
     Indication: COLORECTAL CANCER
     Dosage: CYCLE 1 DAY 15 - AS USED DOSE: 3100+496 MG
     Route: 042
     Dates: start: 20100421, end: 20100421
  12. 5-FU [Suspect]
     Indication: COLORECTAL CANCER
     Dosage: CYCLE 1 DAY 15
     Route: 042
     Dates: start: 20100422, end: 20100423
  13. 5-FU [Suspect]
     Indication: COLORECTAL CANCER
     Dosage: CYCLE 2 - AS USED DOSE: 3100+496 MG
     Route: 042
     Dates: start: 20100505, end: 20100505
  14. ADDITIONAL STUDY MEDICATION [Suspect]
     Indication: COLORECTAL CANCER

REACTIONS (3)
  - Deep vein thrombosis [Recovered/Resolved]
  - Paget-Schroetter syndrome [Recovered/Resolved]
  - Alanine aminotransferase increased [Recovering/Resolving]
